FAERS Safety Report 7824398-7 (Version None)
Quarter: 2011Q4

REPORT INFORMATION
  Report Type: 
  Country: None (occurrence: None)
  Receive Date: 20111018
  Receipt Date: 20111018
  Transmission Date: 20120403
  Serious: Yes (Life-Threatening, Hospitalization)
  Sender: FDA-Public Use
  Company Number: None

PATIENT
  Sex: Male
  Weight: 80.7403 kg

DRUGS (1)
  1. PRIMATENE MIST [Suspect]
     Indication: DYSPNOEA
     Dosage: INHALE USE THEN IN ONE MIN. THEN IN 3 HRS NASAL
     Route: 045
     Dates: start: 20110725

REACTIONS (2)
  - DYSPNOEA [None]
  - OXYGEN SATURATION DECREASED [None]
